FAERS Safety Report 22032835 (Version 2)
Quarter: 2024Q3

REPORT INFORMATION
  Report Type: Spontaneous
  Country: BE (occurrence: BE)
  Receive Date: 20230224
  Receipt Date: 20240703
  Transmission Date: 20241017
  Serious: Yes (Other)
  Sender: OTSUKA
  Company Number: BE-OTSUKA-2021_031340

PATIENT
  Sex: Female
  Weight: 70 kg

DRUGS (2)
  1. ABILIFY MAINTENA [Suspect]
     Active Substance: ARIPIPRAZOLE
     Indication: Schizoaffective disorder
     Dosage: 400 MG IN 4 WEEKS, (STARTED 3 YEARS AGO)
     Route: 030
  2. ABILIFY MAINTENA [Suspect]
     Active Substance: ARIPIPRAZOLE
     Indication: Bipolar disorder

REACTIONS (5)
  - Peripartum haemorrhage [Unknown]
  - Premature separation of placenta [Unknown]
  - Caesarean section [Unknown]
  - Maternal exposure during pregnancy [Unknown]
  - Product use in unapproved indication [Unknown]
